FAERS Safety Report 8219299-9 (Version None)
Quarter: 2012Q1

REPORT INFORMATION
  Report Type: 
  Country: None (occurrence: None)
  Receive Date: 20120319
  Receipt Date: 20120309
  Transmission Date: 20120608
  Serious: Yes (Other)
  Sender: FDA-Public Use
  Company Number: US-BAYER-2012-025442

PATIENT
  Age: 25 Year
  Sex: Female

DRUGS (1)
  1. YAZ [Suspect]
     Dosage: UNK
     Dates: start: 20080101, end: 20080301

REACTIONS (5)
  - SUICIDAL IDEATION [None]
  - CHOLELITHIASIS [None]
  - HOMICIDAL IDEATION [None]
  - ABDOMINAL PAIN [None]
  - MUSCULOSKELETAL CHEST PAIN [None]
